FAERS Safety Report 18009523 (Version 1)
Quarter: 2020Q3

REPORT INFORMATION
  Report Type: Report from Study
  Country: US (occurrence: US)
  Receive Date: 20200710
  Receipt Date: 20200710
  Transmission Date: 20201103
  Serious: Yes (Hospitalization, Other)
  Sender: FDA-Public Use
  Company Number: US-JNJFOC-20200700957

PATIENT
  Sex: Male
  Weight: 66.8 kg

DRUGS (2)
  1. ERDAFITINIB. [Suspect]
     Active Substance: ERDAFITINIB
     Indication: NEOPLASM
     Route: 048
     Dates: start: 20180906
  2. ERDAFITINIB. [Suspect]
     Active Substance: ERDAFITINIB
     Route: 048
     Dates: end: 20181008

REACTIONS (6)
  - Vomiting [Recovered/Resolved]
  - Hypoxia [Not Recovered/Not Resolved]
  - Pulmonary embolism [Not Recovered/Not Resolved]
  - Ascites [Recovered/Resolved]
  - Nausea [Recovered/Resolved]
  - Intestinal obstruction [Not Recovered/Not Resolved]

NARRATIVE: CASE EVENT DATE: 20180919
